FAERS Safety Report 9034979 (Version 1)
Quarter: 2013Q1

REPORT INFORMATION
  Report Type: Spontaneous
  Country: DK (occurrence: None)
  Receive Date: 20130118
  Receipt Date: 20130118
  Transmission Date: 20140127
  Serious: Yes (Hospitalization)
  Sender: FDA-Public Use
  Company Number: 2013MA000407

PATIENT
  Age: 67 Year
  Sex: Male

DRUGS (10)
  1. ASPIRIN\BUTALBITAL\CAFFEINE\CODEINE PHOSPHATE [Suspect]
     Indication: ATRIAL FIBRILLATION
     Dates: start: 2011, end: 20120116
  2. CLEXANE [Suspect]
     Indication: PULMONARY EMBOLISM
     Dates: start: 201103, end: 20120116
  3. MEK INHIBITOR [Suspect]
     Indication: NEOPLASM MALIGNANT
     Route: 048
     Dates: end: 20120126
  4. FUROSEMIDE [Concomitant]
  5. BISOPROLOL [Concomitant]
  6. RAMIPRIL [Concomitant]
  7. QUININE [Concomitant]
  8. IPRATROPIUM?BROMIDE [Concomitant]
  9. PARACETAMOL [Concomitant]
  10. SALBUTAMOL [Concomitant]

REACTIONS (6)
  - Gastrointestinal haemorrhage [None]
  - Neutropenic sepsis [None]
  - Small intestinal haemorrhage [None]
  - Duodenal ulcer haemorrhage [None]
  - Haemorrhagic erosive gastritis [None]
  - Peptic ulcer haemorrhage [None]
